FAERS Safety Report 10451239 (Version 2)
Quarter: 2014Q3

REPORT INFORMATION
  Report Type: Spontaneous
  Country: US (occurrence: US)
  Receive Date: 20140912
  Receipt Date: 20140912
  Transmission Date: 20150326
  Serious: No
  Sender: FDA-Public Use
  Company Number: US-GALDERMA-US14002720

PATIENT
  Age: 40 Year
  Sex: Female

DRUGS (11)
  1. SKIN MEDICA FACIAL CLEANSER [Concomitant]
     Indication: THERAPEUTIC SKIN CARE TOPICAL
     Route: 061
     Dates: start: 2014
  2. ORACEA [Concomitant]
     Active Substance: DOXYCYCLINE
     Indication: ROSACEA
     Route: 048
     Dates: start: 201309
  3. MAC MINERAL COSMETICS [Concomitant]
  4. SKIN MEDICA ULTRA SHEER MOISTURIZER [Concomitant]
  5. PREMARIN [Concomitant]
     Active Substance: ESTROGENS, CONJUGATED
     Indication: HORMONE REPLACEMENT THERAPY
     Dosage: 0.9 MG
     Route: 048
     Dates: start: 2004
  6. PROBIOTIC [Concomitant]
     Active Substance: PROBIOTICS NOS
     Dosage: 1 PILL
     Route: 048
  7. MIRVASO [Suspect]
     Active Substance: BRIMONIDINE TARTRATE
     Indication: ROSACEA
     Dosage: 0.33%
     Route: 061
     Dates: start: 201311, end: 201406
  8. VITAMIN C [Concomitant]
     Active Substance: ASCORBIC ACID
     Dosage: 1 PILL
     Route: 048
  9. SUMADAN WASH [Concomitant]
     Active Substance: SULFACETAMIDE SODIUM\SULFUR
     Dosage: 9%-45%
     Route: 061
     Dates: start: 20140106
  10. ACZONE [Concomitant]
     Active Substance: DAPSONE
     Indication: ROSACEA
     Dosage: 5%
     Route: 061
     Dates: start: 20140106
  11. SKIN MEDICA FACIAL WASH [Concomitant]

REACTIONS (7)
  - Rosacea [Recovered/Resolved]
  - Hypersensitivity [Recovered/Resolved]
  - Flushing [Recovered/Resolved]
  - Inappropriate schedule of drug administration [Recovered/Resolved]
  - Erythema [Recovered/Resolved]
  - Rash macular [Recovered/Resolved]
  - Off label use [Recovered/Resolved]

NARRATIVE: CASE EVENT DATE: 201311
